FAERS Safety Report 5382494-0 (Version None)
Quarter: 2007Q3

REPORT INFORMATION
  Report Type: 
  Country: None (occurrence: None)
  Receive Date: 20070702
  Receipt Date: 20070403
  Transmission Date: 20080115
  Serious: Yes (Hospitalization)
  Sender: FDA-Public Use
  Company Number: PROG00207001141

PATIENT
  Age: 43 Year
  Sex: Female
  Weight: 81 kg

DRUGS (1)
  1. PROMETRIUM [Suspect]
     Indication: UTERINE HAEMORRHAGE
     Dosage: DAILY ORAL DAILY DOSE: 200 MG DAILY FIRST TEN DAYS OF THE MONTH
     Route: 048
     Dates: start: 20070101, end: 20070402

REACTIONS (5)
  - DIZZINESS [None]
  - ELECTROCARDIOGRAM ABNORMAL [None]
  - HEMIPARESIS [None]
  - MOTOR DYSFUNCTION [None]
  - TRANSIENT ISCHAEMIC ATTACK [None]
